FAERS Safety Report 17115558 (Version 1)
Quarter: 2019Q4

REPORT INFORMATION
  Report Type: Spontaneous
  Country: SE (occurrence: SE)
  Receive Date: 20191205
  Receipt Date: 20191205
  Transmission Date: 20200122
  Serious: Yes (Hospitalization)
  Sender: FDA-Public Use
  Company Number: SE-PFIZER INC-2019521474

PATIENT
  Age: 28 Year
  Sex: Male

DRUGS (4)
  1. LERGIGAN [PROMETHAZINE HYDROCHLORIDE] [Suspect]
     Active Substance: PROMETHAZINE HYDROCHLORIDE
     Dosage: 250 MG, UNK (10 PIECES OF 25MG)
     Route: 048
     Dates: start: 20180213, end: 20180213
  2. PROPAVAN [Suspect]
     Active Substance: PROPIOMAZINE
     Dosage: 150 MG, UNK (6 PIECES OF 25MG)
     Route: 048
     Dates: start: 20180213, end: 20180213
  3. ATARAX [Suspect]
     Active Substance: HYDROXYZINE HYDROCHLORIDE
     Dosage: 125 MG, UNK (5 PIECES OF 25MG)
     Route: 048
     Dates: start: 20180213, end: 20180213
  4. SERTRALINE HCL [Suspect]
     Active Substance: SERTRALINE HYDROCHLORIDE
     Dosage: 75 MG, UNK (3 PIECES OF 25MG)
     Route: 048
     Dates: start: 20180213, end: 20180213

REACTIONS (3)
  - Intentional self-injury [Unknown]
  - Intentional overdose [Unknown]
  - Fatigue [Unknown]

NARRATIVE: CASE EVENT DATE: 20180213
